FAERS Safety Report 7986635-8 (Version None)
Quarter: 2011Q4

REPORT INFORMATION
  Report Type: 
  Country: None (occurrence: None)
  Receive Date: 20111216
  Receipt Date: 20110209
  Transmission Date: 20120403
  Serious: No
  Sender: FDA-Public Use
  Company Number: US-BRISTOL-MYERS SQUIBB COMPANY-15541550

PATIENT
  Age: 32 Year
  Sex: Male

DRUGS (2)
  1. BENADRYL [Concomitant]
     Dosage: DOUBLED THE DOSE OF BENADRYL.GETTING NIGHTLY
  2. ABILIFY [Suspect]
     Indication: BIPOLAR DISORDER
     Dosage: DOSE REDUCED TO 15MG.

REACTIONS (1)
  - AKATHISIA [None]
